FAERS Safety Report 12231398 (Version 5)
Quarter: 2017Q1

REPORT INFORMATION
  Report Type: Spontaneous
  Country: US (occurrence: US)
  Receive Date: 20160401
  Receipt Date: 20170125
  Transmission Date: 20170428
  Serious: Yes (Hospitalization, Other)
  Sender: FDA-Public Use
  Company Number: US-009507513-1603USA013375

PATIENT
  Sex: Female
  Weight: 52.15 kg

DRUGS (7)
  1. LANTUS [Concomitant]
     Active Substance: INSULIN GLARGINE
     Route: 058
  2. METFORMIN HYDROCHLORIDE. [Concomitant]
     Active Substance: METFORMIN HYDROCHLORIDE
     Route: 048
  3. HUMALOG [Concomitant]
     Active Substance: INSULIN LISPRO
     Route: 058
  4. XANAX [Concomitant]
     Active Substance: ALPRAZOLAM
     Indication: ANXIETY
     Route: 048
  5. DECADRON [Suspect]
     Active Substance: DEXAMETHASONE
     Indication: TEMPOROMANDIBULAR JOINT SYNDROME
     Dosage: 10 MG, ONCE
     Route: 030
     Dates: start: 20141117, end: 20141117
  6. OXYCODONE HYDROCHLORIDE. [Concomitant]
     Active Substance: OXYCODONE HYDROCHLORIDE
     Route: 048
  7. DECADRON [Suspect]
     Active Substance: DEXAMETHASONE
     Indication: HEADACHE

REACTIONS (12)
  - Decreased appetite [Not Recovered/Not Resolved]
  - Dysgeusia [Not Recovered/Not Resolved]
  - Pneumonia [Not Recovered/Not Resolved]
  - Adult failure to thrive [Not Recovered/Not Resolved]
  - Weight decreased [Not Recovered/Not Resolved]
  - Glossitis [Not Recovered/Not Resolved]
  - Malnutrition [Not Recovered/Not Resolved]
  - Alopecia [Not Recovered/Not Resolved]
  - Insomnia [Not Recovered/Not Resolved]
  - Anosmia [Not Recovered/Not Resolved]
  - Dermatitis diaper [Not Recovered/Not Resolved]
  - Fatigue [Not Recovered/Not Resolved]

NARRATIVE: CASE EVENT DATE: 201411
